FAERS Safety Report 20870138 (Version 2)
Quarter: 2022Q2

REPORT INFORMATION
  Report Type: Report from Study
  Country: BR (occurrence: BR)
  Receive Date: 20220525
  Receipt Date: 20220602
  Transmission Date: 20220721
  Serious: Yes (Other)
  Sender: FDA-Public Use
  Company Number: BR-CELLTRION INC.-2022BR007305

PATIENT

DRUGS (5)
  1. TRUXIMA [Suspect]
     Active Substance: RITUXIMAB-ABBS
     Indication: Neutropenia
     Dosage: 2 AMPOLES EVERY 10 MONTHS; ROUTE: ENDOVENOUS (FIRST INFUSION)
     Dates: start: 202107
  2. TRUXIMA [Suspect]
     Active Substance: RITUXIMAB-ABBS
     Dosage: 2 AMPOLES EVERY 10 MONTHS; ROUTE: ENDOVENOUS (SECOND INFUSION)
     Dates: start: 20220506
  3. DEFLAZACORT [Concomitant]
     Active Substance: DEFLAZACORT
     Indication: Neutropenia
     Dosage: 1 PILL PER DAY
     Route: 048
     Dates: start: 2015
  4. PURAN [Concomitant]
     Active Substance: LEVOTHYROXINE SODIUM
     Indication: Autoimmune thyroiditis
     Dosage: 62,5 MCG, 1 PILL PER DAY
     Route: 048
     Dates: start: 2010
  5. CHOLECALCIFEROL [Concomitant]
     Active Substance: CHOLECALCIFEROL
     Indication: Neutropenia
     Dosage: 10000 U, 2 PILLS PER DAY
     Route: 048
     Dates: start: 2015

REACTIONS (2)
  - COVID-19 [Recovered/Resolved]
  - Off label use [Unknown]

NARRATIVE: CASE EVENT DATE: 20220507
